FAERS Safety Report 17301236 (Version 1)
Quarter: 2020Q1

REPORT INFORMATION
  Report Type: Spontaneous
  Country: GB (occurrence: GB)
  Receive Date: 20200122
  Receipt Date: 20200122
  Transmission Date: 20200409
  Serious: Yes (Other)
  Sender: FDA-Public Use
  Company Number: GB-PFIZER INC-2020027095

PATIENT
  Age: 71 Year
  Sex: Female

DRUGS (1)
  1. ATORVASTATIN CALCIUM. [Suspect]
     Active Substance: ATORVASTATIN CALCIUM
     Dosage: ONCE DAILY
     Route: 048
     Dates: start: 20191210

REACTIONS (4)
  - Dry skin [Unknown]
  - Erythema [Unknown]
  - Skin reaction [Unknown]
  - Rash papular [Unknown]

NARRATIVE: CASE EVENT DATE: 20191212
